FAERS Safety Report 12328421 (Version 1)
Quarter: 2016Q2

REPORT INFORMATION
  Report Type: Spontaneous
  Country: US (occurrence: US)
  Receive Date: 20160503
  Receipt Date: 20160503
  Transmission Date: 20160815
  Serious: No
  Sender: FDA-Public Use
  Company Number: US-BEH-2014044968

PATIENT
  Age: 72 Year
  Sex: Female

DRUGS (3)
  1. HIZENTRA [Suspect]
     Active Substance: HUMAN IMMUNOGLOBULIN G
     Dosage: WEEKLY
     Route: 058
     Dates: start: 20140703
  2. HIZENTRA [Suspect]
     Active Substance: HUMAN IMMUNOGLOBULIN G
     Dosage: WEEKLY
     Route: 058
     Dates: start: 20140627
  3. HIZENTRA [Suspect]
     Active Substance: HUMAN IMMUNOGLOBULIN G
     Dosage: WEEKLY
     Route: 058
     Dates: start: 20140709

REACTIONS (19)
  - Hypoaesthesia oral [Unknown]
  - Nausea [Unknown]
  - Balance disorder [Unknown]
  - Nausea [Unknown]
  - Gait disturbance [Unknown]
  - Dysgeusia [Unknown]
  - Headache [Unknown]
  - Hypoaesthesia [Unknown]
  - Head discomfort [Unknown]
  - Dizziness [Unknown]
  - Insomnia [Unknown]
  - Adverse reaction [Unknown]
  - Hot flush [Unknown]
  - Abdominal discomfort [Unknown]
  - Decreased appetite [Unknown]
  - Pain [Unknown]
  - Heart rate increased [Unknown]
  - Lip swelling [Unknown]
  - Malaise [Unknown]

NARRATIVE: CASE EVENT DATE: 20140627
